FAERS Safety Report 7770268-2 (Version None)
Quarter: 2011Q3

REPORT INFORMATION
  Report Type: 
  Country: None (occurrence: None)
  Receive Date: 20110922
  Receipt Date: 20100205
  Transmission Date: 20111222
  Serious: Yes (Other)
  Sender: FDA-Public Use
  Company Number: US-ASTRAZENECA-2008UW12918

PATIENT
  Age: 41 Year
  Sex: Female

DRUGS (18)
  1. SYNTHROID [Concomitant]
     Dates: start: 20070901
  2. LOTREL [Concomitant]
     Dosage: 5/10 Q AM
     Dates: start: 20070901
  3. PLAVIX [Concomitant]
     Indication: LACUNAR INFARCTION
     Dates: start: 20070901
  4. CLONAZEPAM [Concomitant]
  5. SEROQUEL [Suspect]
     Dosage: 400-800 MG
     Route: 048
     Dates: start: 20070912
  6. DEPAKOTE [Concomitant]
     Dosage: 500 AM AND 1250 P M
     Dates: start: 20070901
  7. PERCOCET [Concomitant]
     Indication: PAIN
     Dosage: 10/325  4 TIMES DAILY P.R.N.
     Dates: start: 20080601
  8. PHENERGAN HCL [Concomitant]
     Indication: NAUSEA
     Dates: start: 20080601
  9. SEROQUEL [Suspect]
     Indication: DEPRESSION
     Route: 048
     Dates: start: 20010101
  10. NEXIUM [Concomitant]
     Indication: GASTROOESOPHAGEAL REFLUX DISEASE
     Dates: start: 20070901
  11. SEROQUEL [Suspect]
     Indication: ANXIETY
     Route: 048
     Dates: start: 20010101
  12. PLAVIX [Concomitant]
     Indication: TRANSIENT ISCHAEMIC ATTACK
     Dates: start: 20070901
  13. CLONAZEPAM [Concomitant]
     Dates: start: 20070901
  14. EFFEXOR XR [Concomitant]
     Dates: start: 20070901
  15. LEXAPRO [Concomitant]
     Dates: start: 20070901
  16. SEROQUEL [Suspect]
     Dosage: 400-800 MG
     Route: 048
     Dates: start: 20070912
  17. AMBIEN CR [Concomitant]
     Indication: SLEEP DISORDER
     Dates: start: 20070901
  18. NEURONTIN [Concomitant]
     Dates: start: 20070901

REACTIONS (10)
  - NEPHROLITHIASIS [None]
  - HAEMATURIA [None]
  - DIABETES MELLITUS [None]
  - TYPE 2 DIABETES MELLITUS [None]
  - THYROID DISORDER [None]
  - CEREBROVASCULAR ACCIDENT [None]
  - HYPERLIPIDAEMIA [None]
  - BLOOD TRIGLYCERIDES INCREASED [None]
  - HYPERTENSION [None]
  - BLOOD CHOLESTEROL INCREASED [None]
